FAERS Safety Report 16197469 (Version 1)
Quarter: 2019Q2

REPORT INFORMATION
  Report Type: Spontaneous
  Country: US (occurrence: US)
  Receive Date: 20190413
  Receipt Date: 20190413
  Transmission Date: 20190711
  Serious: No
  Sender: FDA-Public Use
  Company Number: None

PATIENT
  Age: 27 Year
  Sex: Female
  Weight: 95.85 kg

DRUGS (4)
  1. PRENATAL VITAMIN [Concomitant]
     Active Substance: VITAMINS
  2. CEFDINIR. [Suspect]
     Active Substance: CEFDINIR
     Indication: LYMPH GLAND INFECTION
     Dates: start: 20190409
  3. PROBIOTIC [Concomitant]
     Active Substance: PROBIOTICS NOS
  4. IBUPROFEN. [Concomitant]
     Active Substance: IBUPROFEN

REACTIONS (5)
  - Headache [None]
  - Peripheral coldness [None]
  - Migraine [None]
  - Photophobia [None]
  - Hyperacusis [None]

NARRATIVE: CASE EVENT DATE: 20190412
